FAERS Safety Report 25049877 (Version 1)
Quarter: 2025Q1

REPORT INFORMATION
  Report Type: Spontaneous
  Country: CN (occurrence: CN)
  Receive Date: 20250307
  Receipt Date: 20250307
  Transmission Date: 20250408
  Serious: Yes (Other)
  Sender: JOHNSON AND JOHNSON
  Company Number: CN-JNJFOC-20250306725

PATIENT
  Age: 42 Year
  Sex: Male

DRUGS (3)
  1. TOPAMAX [Suspect]
     Active Substance: TOPIRAMATE
     Indication: Epilepsy
     Dosage: 25 MG - 2 TABLETS IN THE MORNING AND 2 TABLETS IN THE EVENING
     Route: 048
     Dates: start: 202406
  2. TOPAMAX [Suspect]
     Active Substance: TOPIRAMATE
     Dosage: 25 MG - 3 TABLETS IN THE MORNING AND 3 TABLETS IN THE EVENING
     Route: 048
  3. VALPROATE SODIUM [Concomitant]
     Active Substance: VALPROATE SODIUM

REACTIONS (5)
  - Epilepsy [Unknown]
  - Somnolence [Unknown]
  - Body temperature abnormal [Unknown]
  - Peripheral coldness [Unknown]
  - Speech disorder [Unknown]
